FAERS Safety Report 10221250 (Version 1)
Quarter: 2014Q2

REPORT INFORMATION
  Report Type: Spontaneous
  Country: US (occurrence: US)
  Receive Date: 20140606
  Receipt Date: 20140606
  Transmission Date: 20141212
  Serious: No
  Sender: FDA-Public Use
  Company Number: US-GLAXOSMITHKLINE-A1068882A

PATIENT
  Age: 74 Year
  Sex: Female

DRUGS (6)
  1. BREO ELLIPTA [Suspect]
     Indication: EMPHYSEMA
     Dosage: 1PUFF PER DAY
     Route: 055
     Dates: start: 20140401
  2. AMLODIPINE [Concomitant]
  3. DIGOXIN [Concomitant]
  4. POTASSIUM [Concomitant]
  5. PREDNISONE [Concomitant]
  6. CEPHALEXIN [Concomitant]

REACTIONS (1)
  - Dry throat [Not Recovered/Not Resolved]
